FAERS Safety Report 7916563-5 (Version None)
Quarter: 2011Q4

REPORT INFORMATION
  Report Type: 
  Country: None (occurrence: None)
  Receive Date: 20111116
  Receipt Date: 20111108
  Transmission Date: 20120403
  Serious: Yes (Other)
  Sender: FDA-Public Use
  Company Number: US-PURDUE-USA-2011-0075716

PATIENT
  Sex: Female
  Weight: 64 kg

DRUGS (8)
  1. OXYCONTIN [Suspect]
     Indication: PAIN
     Dosage: 40 MG, TID
     Route: 048
     Dates: start: 20100901, end: 20110323
  2. XANAX [Concomitant]
     Indication: GENERALISED ANXIETY DISORDER
     Dosage: 2 MG, QID
  3. SOMA [Concomitant]
     Indication: MYALGIA
     Dosage: 4 DF, DAILY
     Route: 048
  4. ROXICODONE [Concomitant]
     Indication: PAIN
     Dosage: 60 MG, QID
     Route: 048
  5. NORCO [Concomitant]
     Indication: PAIN
     Dosage: 2 DF, BID
  6. OXYCONTIN [Suspect]
     Indication: ARTHRALGIA
     Dosage: 20 MG, TID
     Route: 048
     Dates: start: 20110323
  7. PREVACID [Concomitant]
     Indication: GASTROOESOPHAGEAL REFLUX DISEASE
     Dosage: 30 MG, DAILY
  8. IMITREX [Concomitant]
     Indication: MIGRAINE
     Dosage: 100 MG, PRN
     Route: 048

REACTIONS (3)
  - PRURITUS [None]
  - NAUSEA [None]
  - RASH VESICULAR [None]
